FAERS Safety Report 9322642 (Version 2)
Quarter: 2013Q2

REPORT INFORMATION
  Report Type: Spontaneous
  Country: DE (occurrence: DE)
  Receive Date: 20130531
  Receipt Date: 20130625
  Transmission Date: 20140414
  Serious: Yes (Disabling, Other)
  Sender: FDA-Public Use
  Company Number: DE-ROCHE-1231122

PATIENT
  Age: 53 Year
  Sex: Female
  Weight: 88 kg

DRUGS (3)
  1. AVASTIN [Suspect]
     Indication: OVARIAN CANCER
     Route: 042
     Dates: start: 20130301, end: 20130503
  2. CARBOPLATIN [Concomitant]
     Indication: OVARIAN CANCER
     Route: 042
     Dates: start: 20130208, end: 20130503
  3. GEMZAR [Concomitant]
     Indication: OVARIAN CANCER
     Route: 042
     Dates: start: 20130208, end: 20130503

REACTIONS (3)
  - Cerebral haemorrhage [Recovered/Resolved with Sequelae]
  - Hypertension [Recovering/Resolving]
  - Fall [Unknown]
